FAERS Safety Report 18111451 (Version 3)
Quarter: 2020Q3

REPORT INFORMATION
  Report Type: Spontaneous
  Country: US (occurrence: US)
  Receive Date: 20200804
  Receipt Date: 20200902
  Transmission Date: 20201103
  Serious: Yes (Hospitalization, Other)
  Sender: FDA-Public Use
  Company Number: NVSC2020US212580

PATIENT
  Age: 33 Year
  Sex: Male

DRUGS (12)
  1. TYLENOL [Concomitant]
     Active Substance: ACETAMINOPHEN
     Indication: PRODUCT USED FOR UNKNOWN INDICATION
     Dosage: 500 MG, PRN
     Route: 065
  2. ENOXAPARIN [Concomitant]
     Active Substance: ENOXAPARIN
     Indication: PRODUCT USED FOR UNKNOWN INDICATION
     Dosage: 40 MG, QD
     Route: 058
  3. CEFTRIAXON [Concomitant]
     Active Substance: CEFTRIAXONE
     Indication: PRODUCT USED FOR UNKNOWN INDICATION
     Route: 065
  4. SOLU?MEDROL [Concomitant]
     Active Substance: METHYLPREDNISOLONE SODIUM SUCCINATE
     Indication: PRODUCT USED FOR UNKNOWN INDICATION
     Dosage: 1000 MG (PER DAY X 2 DAYS, INFUSE OVER 1.5?2 HOURS AS TOLERATED)
     Route: 042
  5. GILENYA [Suspect]
     Active Substance: FINGOLIMOD HYDROCHLORIDE
     Indication: MULTIPLE SCLEROSIS
     Dosage: 0.5 MG, QD
     Route: 048
     Dates: start: 2015
  6. GILENYA [Suspect]
     Active Substance: FINGOLIMOD HYDROCHLORIDE
     Dosage: UNK
     Route: 065
     Dates: start: 20200727
  7. ZOFRAN [Concomitant]
     Active Substance: ONDANSETRON HYDROCHLORIDE
     Indication: PRODUCT USED FOR UNKNOWN INDICATION
     Dosage: 4 MG, PRN
     Route: 042
  8. GILENYA [Suspect]
     Active Substance: FINGOLIMOD HYDROCHLORIDE
     Dosage: 0.5 MG
     Route: 048
     Dates: start: 20190212, end: 20200718
  9. LACTATED RINGERS SOLUTION [Concomitant]
     Active Substance: CALCIUM CHLORIDE\POTASSIUM CHLORIDE\SODIUM CHLORIDE\SODIUM LACTATE
     Indication: PRODUCT USED FOR UNKNOWN INDICATION
     Dosage: 1000 ML
     Route: 041
  10. FERROUS SULFATE. [Concomitant]
     Active Substance: FERROUS SULFATE
     Dosage: 1 DF, BID
     Route: 065
  11. VIT D [Concomitant]
     Active Substance: VITAMIN D NOS
     Indication: PRODUCT USED FOR UNKNOWN INDICATION
     Route: 065
  12. FERROUS SULFATE. [Concomitant]
     Active Substance: FERROUS SULFATE
     Indication: PRODUCT USED FOR UNKNOWN INDICATION
     Dosage: 325 MG, QD
     Route: 048

REACTIONS (29)
  - Weight decreased [Unknown]
  - Janeway lesion [Unknown]
  - Skin discolouration [Recovered/Resolved]
  - Memory impairment [Unknown]
  - Asthenia [Unknown]
  - Urinary tract infection [Unknown]
  - Central nervous system lesion [Unknown]
  - Dehydration [Unknown]
  - Lactic acidosis [Unknown]
  - Suspected COVID-19 [Unknown]
  - Alopecia [Unknown]
  - Iron deficiency anaemia [Unknown]
  - Alpha haemolytic streptococcal infection [Unknown]
  - Hemiplegia [Unknown]
  - Chills [Unknown]
  - Dysarthria [Unknown]
  - Pyrexia [Unknown]
  - Headache [Unknown]
  - Endocarditis [Recovering/Resolving]
  - Cardiac murmur [Unknown]
  - Mitral valve incompetence [Unknown]
  - Pain [Unknown]
  - Sepsis [Unknown]
  - Lymphocyte count abnormal [Unknown]
  - Sensory loss [Unknown]
  - Night sweats [Unknown]
  - Multiple sclerosis relapse [Recovering/Resolving]
  - Cerebral artery embolism [Unknown]
  - Insomnia [Unknown]

NARRATIVE: CASE EVENT DATE: 2015
